FAERS Safety Report 25759264 (Version 1)
Quarter: 2025Q3

REPORT INFORMATION
  Report Type: Spontaneous
  Country: CN (occurrence: CN)
  Receive Date: 20250904
  Receipt Date: 20250904
  Transmission Date: 20251021
  Serious: Yes (Other)
  Sender: EMD SERONO INC
  Company Number: CN-Merck Healthcare KGaA-2025044513

PATIENT
  Age: 18 Year
  Sex: Male

DRUGS (3)
  1. GLUCOPHAGE XR [Suspect]
     Active Substance: METFORMIN HYDROCHLORIDE
     Indication: Blood glucose increased
     Dates: start: 20250815, end: 20250816
  2. GLUCOPHAGE XR [Suspect]
     Active Substance: METFORMIN HYDROCHLORIDE
     Dates: start: 20250816, end: 20250819
  3. MIGLITOL [Concomitant]
     Active Substance: MIGLITOL
     Indication: Blood glucose increased
     Dates: start: 20250815, end: 20250823

REACTIONS (1)
  - Hepatic function abnormal [Recovering/Resolving]

NARRATIVE: CASE EVENT DATE: 20250818
